FAERS Safety Report 19724693 (Version 2)
Quarter: 2021Q3

REPORT INFORMATION
  Report Type: Spontaneous
  Country: CN (occurrence: CN)
  Receive Date: 20210820
  Receipt Date: 20210927
  Transmission Date: 20211014
  Serious: Yes (Hospitalization, Other)
  Sender: FDA-Public Use
  Company Number: CN-LUPIN PHARMACEUTICALS INC.-2021-15092

PATIENT
  Age: 32 Year
  Sex: Male
  Weight: 75 kg

DRUGS (7)
  1. CALCITRIOL. [Concomitant]
     Active Substance: CALCITRIOL
     Indication: INFECTION
     Dosage: 0.5 MICROGRAM, 12 HOUR
     Route: 048
     Dates: start: 20181221, end: 20190106
  2. MOXIFLOXACIN. [Concomitant]
     Active Substance: MOXIFLOXACIN
     Indication: INFECTION
     Dosage: UNK
     Route: 065
     Dates: start: 20190113, end: 20190114
  3. TRAMADOL HYDROCHLORIDE. [Concomitant]
     Active Substance: TRAMADOL HYDROCHLORIDE
     Indication: INFECTION
     Dosage: 100 MILLIGRAM
     Route: 048
     Dates: start: 20181221, end: 20190110
  4. CELECOXIB. [Suspect]
     Active Substance: CELECOXIB
     Indication: PRODUCT USED FOR UNKNOWN INDICATION
     Dosage: 200 MILLIGRAM, BID
     Route: 048
     Dates: start: 20181221, end: 20190110
  5. SODIUM AESCINATE [Concomitant]
     Active Substance: SODIUM ESCINATE
     Indication: SWELLING
     Dosage: 60 MILLIGRAM, 12 HOUR
     Route: 048
     Dates: start: 20181227, end: 20190110
  6. CELECOXIB. [Suspect]
     Active Substance: CELECOXIB
     Dosage: 200 MILLIGRAM, QD
     Route: 048
     Dates: start: 20190113, end: 20190114
  7. CEFAMANDOLE NAFATE [Concomitant]
     Active Substance: CEFAMANDOLE NAFATE
     Indication: INFECTION
     Dosage: 2 GRAM, 2.0 G I.V.GTT, Q12H
     Route: 042
     Dates: start: 20181221, end: 20190110

REACTIONS (3)
  - Rash [Recovered/Resolved]
  - Pyrexia [Recovered/Resolved]
  - Erythema [Recovered/Resolved]

NARRATIVE: CASE EVENT DATE: 20190114
